FAERS Safety Report 6509625-0 (Version None)
Quarter: 2009Q4

REPORT INFORMATION
  Report Type: 
  Country: None (occurrence: None)
  Receive Date: 20091222
  Receipt Date: 20091214
  Transmission Date: 20100525
  Serious: Yes (Death)
  Sender: FDA-Public Use
  Company Number: JP-ROCHE-666720

PATIENT
  Age: 54 Year
  Sex: Male

DRUGS (6)
  1. CELLCEPT [Suspect]
     Indication: CHRONIC GRAFT VERSUS HOST DISEASE
     Dosage: NOTE: 500MG-2500MG
     Route: 048
  2. CYCLOSPORINE [Concomitant]
     Route: 048
  3. TACROLIMUS HYDRATE [Concomitant]
     Route: 048
  4. MEDROL [Concomitant]
  5. METHYLPREDNISOLONE SODIUM SUCCINATE [Concomitant]
     Dosage: ROUTE: INTRAVENOUS DRIP
  6. METHYLPREDNISOLONE SODIUM SUCCINATE [Concomitant]
     Dosage: ROUTE: INJECTABLE (NOT OTHERWISE SPECIFIED)

REACTIONS (2)
  - ATYPICAL MYCOBACTERIAL INFECTION [None]
  - PNEUMONIA [None]
